FAERS Safety Report 19436712 (Version 2)
Quarter: 2021Q3

REPORT INFORMATION
  Report Type: Spontaneous
  Country: US (occurrence: US)
  Receive Date: 20210618
  Receipt Date: 20210714
  Transmission Date: 20211014
  Serious: Yes (Other)
  Sender: FDA-Public Use
  Company Number: US-PFIZER INC-2021296562

PATIENT
  Age: 66 Year

DRUGS (1)
  1. CORTISONE ACETATE. [Suspect]
     Active Substance: CORTISONE ACETATE
     Indication: MENTAL DISORDER
     Dosage: UNK

REACTIONS (3)
  - Steroid withdrawal syndrome [Unknown]
  - Viral infection [Unknown]
  - Off label use [Unknown]
